FAERS Safety Report 5524393-7 (Version None)
Quarter: 2007Q4

REPORT INFORMATION
  Report Type: 
  Country: None (occurrence: None)
  Receive Date: 20071121
  Receipt Date: 20071113
  Transmission Date: 20080405
  Serious: Yes (Other)
  Sender: FDA-Public Use
  Company Number: US-PFIZER INC-2007096534

PATIENT
  Sex: Female

DRUGS (3)
  1. CHANTIX [Suspect]
     Indication: SMOKING CESSATION THERAPY
  2. LIPITOR [Concomitant]
     Indication: BLOOD CHOLESTEROL INCREASED
  3. PREDNISOLONE [Concomitant]
     Indication: HYPOTENSION

REACTIONS (4)
  - ABNORMAL DREAMS [None]
  - DYSPHEMIA [None]
  - HYPERSOMNIA [None]
  - MEMORY IMPAIRMENT [None]
